FAERS Safety Report 4781473-1 (Version None)
Quarter: 2005Q3

REPORT INFORMATION
  Report Type: 
  Country: None (occurrence: None)
  Receive Date: 20050927
  Receipt Date: 20050914
  Transmission Date: 20060218
  Serious: Yes (Hospitalization, Other)
  Sender: FDA-Public Use
  Company Number: 2005093064

PATIENT
  Age: 69 Year
  Sex: Female

DRUGS (6)
  1. DETRUSITOL XL (TOLTERODINE) [Suspect]
     Indication: INCONTINENCE
     Dosage: 4 MG (2 MG, 2 IN 1 D), ORAL
     Route: 048
     Dates: end: 20050427
  2. DOTHIEPIN HYDROCHLORIDE [Concomitant]
  3. LANSOPRAZOLE [Concomitant]
  4. TAMOXIFEN CITRATE [Concomitant]
  5. BACLOFEN [Concomitant]
  6. CO-COMADOL (CODEINE PHOSPHATE, PARACETAMOL) [Concomitant]

REACTIONS (6)
  - BLOOD PRESSURE DECREASED [None]
  - C-REACTIVE PROTEIN INCREASED [None]
  - FALL [None]
  - LOSS OF CONSCIOUSNESS [None]
  - POST PROCEDURAL COMPLICATION [None]
  - SINUS TACHYCARDIA [None]
